FAERS Safety Report 14355485 (Version 1)
Quarter: 2018Q1

REPORT INFORMATION
  Report Type: Spontaneous
  Country: CL (occurrence: CL)
  Receive Date: 20180105
  Receipt Date: 20180105
  Transmission Date: 20180509
  Serious: Yes (Other)
  Sender: FDA-Public Use
  Company Number: CL-GLAXOSMITHKLINE-CL2018GSK001014

PATIENT
  Age: 20 Year
  Sex: Male

DRUGS (1)
  1. BACTROBAN [Suspect]
     Active Substance: MUPIROCIN\MUPIROCIN CALCIUM
     Indication: NASAL SEPTAL OPERATION
     Dosage: UNK
     Route: 045
     Dates: start: 20170803, end: 20170810

REACTIONS (4)
  - Impaired healing [Recovered/Resolved with Sequelae]
  - Product administered at inappropriate site [Unknown]
  - Drug dispensing error [Unknown]
  - Nasal septum perforation [Not Recovered/Not Resolved]

NARRATIVE: CASE EVENT DATE: 201708
